FAERS Safety Report 21439240 (Version 3)
Quarter: 2023Q1

REPORT INFORMATION
  Report Type: Report from Study
  Country: US (occurrence: US)
  Receive Date: 20221011
  Receipt Date: 20230214
  Transmission Date: 20230418
  Serious: No
  Sender: FDA-Public Use
  Company Number: US-NOVARTISTESTPH-NVSC2022US224346

PATIENT
  Age: 22 Year
  Sex: Female
  Weight: 71.655 kg

DRUGS (8)
  1. MYCOPHENOLATE MOFETIL [Suspect]
     Active Substance: MYCOPHENOLATE MOFETIL
     Indication: Systemic lupus erythematosus
     Dosage: 325 MG, QD
     Route: 048
     Dates: start: 2016, end: 20220916
  2. HYDROXYCHLOROQUINE [Concomitant]
     Active Substance: HYDROXYCHLOROQUINE
     Indication: Systemic lupus erythematosus
     Dosage: 200 MG, QD
     Route: 065
     Dates: start: 2016, end: 20220930
  3. HYDROXYCHLOROQUINE [Concomitant]
     Active Substance: HYDROXYCHLOROQUINE
     Dosage: UNK
     Route: 065
     Dates: start: 20220916
  4. PREDNISONE [Concomitant]
     Active Substance: PREDNISONE
     Indication: Systemic lupus erythematosus
     Dosage: 10 MG, QD
     Route: 065
     Dates: start: 2016
  5. PREDNISONE [Concomitant]
     Active Substance: PREDNISONE
     Dosage: UNK
     Route: 065
     Dates: start: 20220916
  6. IRON [Concomitant]
     Active Substance: IRON
     Indication: Mineral supplementation
     Dosage: 325 MG, QD
     Route: 065
     Dates: start: 2019
  7. ASPIRIN [Concomitant]
     Active Substance: ASPIRIN
     Indication: Eclampsia
     Dosage: 81 MG, BID
     Route: 065
     Dates: start: 20220812
  8. VITAMINS [Concomitant]
     Active Substance: VITAMINS
     Indication: Hypovitaminosis
     Dosage: (28MG-800MG) QD
     Route: 065
     Dates: start: 20220812

REACTIONS (2)
  - Maternal exposure during pregnancy [Unknown]
  - Product use in unapproved indication [Unknown]

NARRATIVE: CASE EVENT DATE: 20220906
